FAERS Safety Report 13681485 (Version 1)
Quarter: 2017Q2

REPORT INFORMATION
  Report Type: Spontaneous
  Country: US (occurrence: US)
  Receive Date: 20170622
  Receipt Date: 20170622
  Transmission Date: 20170830
  Serious: Yes (Hospitalization, Disabling)
  Sender: FDA-Public Use
  Company Number: None

PATIENT
  Age: 58 Year
  Sex: Female
  Weight: 76.5 kg

DRUGS (3)
  1. ALPRAZOLAM. [Suspect]
     Active Substance: ALPRAZOLAM
     Indication: MUSCLE SPASMS
     Dosage: ?          QUANTITY:1 TABLET(S);?
     Route: 048
  2. CLONAZEPAM. [Suspect]
     Active Substance: CLONAZEPAM
     Indication: MUSCLE SPASMS
     Dosage: ?          QUANTITY:1 TABLET(S);?
     Route: 048
  3. SYNTHROID ATENOLOL [Concomitant]

REACTIONS (24)
  - Muscle spasms [None]
  - Personality change [None]
  - Seizure [None]
  - Muscle contracture [None]
  - Head discomfort [None]
  - Hypertension [None]
  - Pain in extremity [None]
  - Dizziness [None]
  - Akathisia [None]
  - Pain [None]
  - Agoraphobia [None]
  - Impaired driving ability [None]
  - Visual impairment [None]
  - Withdrawal syndrome [None]
  - Insomnia [None]
  - Dysphagia [None]
  - Gait disturbance [None]
  - Dysstasia [None]
  - Anal incontinence [None]
  - Gastrooesophageal reflux disease [None]
  - Blood sodium decreased [None]
  - Cognitive disorder [None]
  - Suicidal ideation [None]
  - Urinary incontinence [None]

NARRATIVE: CASE EVENT DATE: 20000601
